FAERS Safety Report 23175951 (Version 1)
Quarter: 2023Q4

REPORT INFORMATION
  Report Type: Spontaneous
  Country: US (occurrence: US)
  Receive Date: 20231113
  Receipt Date: 20231113
  Transmission Date: 20240110
  Serious: Yes (Hospitalization, Other)
  Sender: FDA-Public Use
  Company Number: US-APOTEX-2023AP016468

PATIENT
  Age: 67 Year
  Sex: Female

DRUGS (2)
  1. REGADENOSON [Suspect]
     Active Substance: REGADENOSON
     Indication: Positron emission tomogram
     Dosage: UNK
     Route: 065
  2. REGADENOSON [Suspect]
     Active Substance: REGADENOSON
     Indication: Scan myocardial perfusion

REACTIONS (3)
  - Arteriospasm coronary [Unknown]
  - Electrocardiogram ST segment elevation [Not Recovered/Not Resolved]
  - Myocardial ischaemia [Unknown]
